FAERS Safety Report 4837045-3 (Version None)
Quarter: 2005Q4

REPORT INFORMATION
  Report Type: 
  Country: None (occurrence: None)
  Receive Date: 20051121
  Receipt Date: 20051121
  Transmission Date: 20060501
  Serious: Yes (Hospitalization)
  Sender: FDA-Public Use
  Company Number: None

PATIENT
  Age: 57 Year
  Sex: Male
  Weight: 81 kg

DRUGS (2)
  1. CARBOPLATIN IN D5W [Suspect]
     Indication: BLADDER CANCER
     Dosage: 760 MG 1250 ML
     Dates: start: 20050928
  2. TAXOL [Suspect]
     Indication: BLADDER CANCER
     Dosage: 330 MG 1500 ML
     Dates: start: 20050928

REACTIONS (2)
  - POST PROCEDURAL DIARRHOEA [None]
  - POST PROCEDURAL NAUSEA [None]
